FAERS Safety Report 4951456-7 (Version None)
Quarter: 2006Q1

REPORT INFORMATION
  Report Type: 
  Country: None (occurrence: None)
  Receive Date: 20060317
  Receipt Date: 20060307
  Transmission Date: 20060701
  Serious: Yes (Hospitalization, Other)
  Sender: FDA-Public Use
  Company Number: 2006034030

PATIENT
  Sex: Female

DRUGS (1)
  1. BEXTRA [Suspect]
     Indication: ARTHRITIS

REACTIONS (9)
  - BREAST CANCER FEMALE [None]
  - CEREBROVASCULAR ACCIDENT [None]
  - HEADACHE [None]
  - MALAISE [None]
  - MIGRAINE [None]
  - PANIC ATTACK [None]
  - ROTATOR CUFF SYNDROME [None]
  - UNEVALUABLE EVENT [None]
  - WEIGHT FLUCTUATION [None]
